FAERS Safety Report 5924102-3 (Version None)
Quarter: 2008Q4

REPORT INFORMATION
  Report Type: 
  Country: None (occurrence: None)
  Receive Date: 20081015
  Receipt Date: 20080930
  Transmission Date: 20090506
  Serious: Yes (Other)
  Sender: FDA-Public Use
  Company Number: 2008S1017699

PATIENT
  Age: 48 Year
  Sex: Female

DRUGS (3)
  1. MITOXANTRONE [Suspect]
     Indication: ACUTE MYELOID LEUKAEMIA
     Dosage: 120 MG;
     Dates: start: 19960701, end: 19970401
  2. AZATHIOPRINE [Suspect]
     Indication: ACUTE MYELOID LEUKAEMIA
     Dosage: 150 MG; DAILY
     Dates: start: 19970101, end: 20071101
  3. INTERFERON BETA-1B (INTERFERON BETA-2B) (PREV.) [Concomitant]

REACTIONS (2)
  - ACUTE GRAFT VERSUS HOST DISEASE IN INTESTINE [None]
  - PANCYTOPENIA [None]
